FAERS Safety Report 7656958-0 (Version None)
Quarter: 2011Q3

REPORT INFORMATION
  Report Type: 
  Country: None (occurrence: None)
  Receive Date: 20110729
  Receipt Date: 20110718
  Transmission Date: 20111222
  Serious: No
  Sender: FDA-Public Use
  Company Number: 2011-01133

PATIENT
  Age: 85 Year
  Sex: Female
  Weight: 63.5036 kg

DRUGS (6)
  1. OMEPRAZOLE [Concomitant]
  2. RYTHMOL [Concomitant]
  3. LORATADINE [Concomitant]
  4. LIPITOR [Concomitant]
  5. ZICAM COLD REMEDY RAPIDMELTS WITH  VITAMIN C [Suspect]
     Dosage: EVERY 3 HOURS, 2 DAYS
     Dates: start: 20110717, end: 20110718
  6. LOSARTAN POTASSIUM [Concomitant]

REACTIONS (1)
  - AGEUSIA [None]
